FAERS Safety Report 8920637 (Version 1)
Quarter: 2012Q4

REPORT INFORMATION
  Report Type: 
  Country: US (occurrence: US)
  Receive Date: 20121122
  Receipt Date: 20121122
  Transmission Date: 20130627
  Serious: Yes (Other)
  Sender: FDA-Public Use
  Company Number: CHPA2012US023768

PATIENT

DRUGS (7)
  1. VOLTAREN GEL [Suspect]
     Indication: LIGAMENT SPRAIN
     Dosage: UNK (a small amount, covers entire knee joint)
     Route: 061
     Dates: start: 200903
  2. CELEBREX [Concomitant]
     Indication: LIGAMENT SPRAIN
     Dosage: UNK (took for a day or two)
  3. EXCEDRIN [Concomitant]
     Indication: LIGAMENT SPRAIN
     Dosage: UNK
  4. VIOXX [Concomitant]
     Indication: LIGAMENT SPRAIN
     Dosage: UNK (for a total of six months)
  5. CORTISONE [Concomitant]
     Indication: LIGAMENT SPRAIN
     Dosage: 1 DF, ONCE/SINGLE
     Dates: start: 201210, end: 201210
  6. IBUPROFEN [Concomitant]
     Dosage: UNK (800 mg strength)
  7. DRUG THERAPY NOS [Concomitant]
     Indication: LIGAMENT SPRAIN
     Dosage: 1 DF, ONCE/SINGLE
     Dates: start: 20120928, end: 20120928

REACTIONS (8)
  - Arthropathy [Not Recovered/Not Resolved]
  - Ligament sprain [Not Recovered/Not Resolved]
  - Arthralgia [Recovered/Resolved]
  - Tenderness [Recovered/Resolved]
  - Off label use [Unknown]
  - Therapeutic response unexpected [Unknown]
  - Expired drug administered [Unknown]
  - Wrong technique in drug usage process [Unknown]
